FAERS Safety Report 6408566-7 (Version None)
Quarter: 2009Q4

REPORT INFORMATION
  Report Type: 
  Country: None (occurrence: None)
  Receive Date: 20091009
  Receipt Date: 20090928
  Transmission Date: 20100525
  Serious: Yes (Other)
  Sender: FDA-Public Use
  Company Number: CHPA2009DE19556

PATIENT
  Sex: Female

DRUGS (2)
  1. NICOTINE [Suspect]
     Indication: SMOKING CESSATION THERAPY
     Dosage: 10-20 MG (5-10 GUMS), CHEWED; 6-8 MG (3-4 GUMS), CHEWED
     Dates: start: 20050101
  2. PROLASTIN (ALPHA-1-ANTITRYPSIN) [Concomitant]

REACTIONS (2)
  - EMPHYSEMA [None]
  - INTENTIONAL DRUG MISUSE [None]
